FAERS Safety Report 5196213-4 (Version None)
Quarter: 2007Q1

REPORT INFORMATION
  Report Type: 
  Country: None (occurrence: None)
  Receive Date: 20070102
  Receipt Date: 20061221
  Transmission Date: 20070707
  Serious: Yes (Death)
  Sender: FDA-Public Use
  Company Number: GB-PFIZER INC-2006116733

PATIENT
  Sex: Male
  Weight: 110 kg

DRUGS (5)
  1. SU-011,248 [Suspect]
     Indication: RENAL CELL CARCINOMA STAGE UNSPECIFIED
     Route: 048
  2. DEXAMETHASONE [Concomitant]
  3. AMLODIPINE [Concomitant]
  4. BENDROFLUAZIDE [Concomitant]
  5. TRAMADOL HCL [Concomitant]

REACTIONS (3)
  - DISEASE PROGRESSION [None]
  - MALIGNANT NEOPLASM PROGRESSION [None]
  - RENAL CELL CARCINOMA STAGE UNSPECIFIED [None]
